FAERS Safety Report 4751414-1 (Version None)
Quarter: 2005Q3

REPORT INFORMATION
  Report Type: 
  Country: None (occurrence: None)
  Receive Date: 20050824
  Receipt Date: 20050121
  Transmission Date: 20060218
  Serious: Yes (Hospitalization, Disabling)
  Sender: FDA-Public Use
  Company Number: US-ROCHE-393478

PATIENT
  Age: 16 Year
  Sex: Female
  Weight: 58.1 kg

DRUGS (4)
  1. ACCUTANE [Suspect]
     Route: 048
     Dates: start: 19991006, end: 19991108
  2. ACCUTANE [Suspect]
     Route: 048
     Dates: start: 19991108, end: 20000228
  3. ACCUTANE [Suspect]
     Route: 048
     Dates: start: 20000228
  4. ORTHO TRI-CYCLEN [Concomitant]
     Route: 048

REACTIONS (53)
  - ABSCESS [None]
  - ACNE [None]
  - ALANINE AMINOTRANSFERASE INCREASED [None]
  - AMENORRHOEA [None]
  - ANAEMIA [None]
  - ANHEDONIA [None]
  - ANOVULATORY CYCLE [None]
  - ASPARTATE AMINOTRANSFERASE INCREASED [None]
  - BACK PAIN [None]
  - BACTERIAL CULTURE POSITIVE [None]
  - BLOOD ALKALINE PHOSPHATASE DECREASED [None]
  - BLOOD CREATINE PHOSPHOKINASE INCREASED [None]
  - CERVICITIS [None]
  - CHEST PAIN [None]
  - COLITIS [None]
  - COSTOCHONDRITIS [None]
  - CROHN'S DISEASE [None]
  - CYST [None]
  - DEPRESSION [None]
  - DISTURBANCE IN ATTENTION [None]
  - DYSPEPSIA [None]
  - EATING DISORDER [None]
  - ENDOMETRITIS [None]
  - FALL [None]
  - FEELING GUILTY [None]
  - GASTRITIS [None]
  - GASTROINTESTINAL DISORDER [None]
  - HAEMORRHOIDS [None]
  - HERPES SIMPLEX [None]
  - HUMAN PAPILLOMA VIRUS TEST POSITIVE [None]
  - HYPOMENORRHOEA [None]
  - ILEUS [None]
  - INFLAMMATORY BOWEL DISEASE [None]
  - INSOMNIA [None]
  - INTESTINAL HAEMORRHAGE [None]
  - IRRITABILITY [None]
  - LACTOSE INTOLERANCE [None]
  - LYMPHOID TISSUE HYPERPLASIA [None]
  - MAJOR DEPRESSION [None]
  - MENORRHAGIA [None]
  - MILK ALLERGY [None]
  - MULTI-ORGAN DISORDER [None]
  - NASAL TURBINATE HYPERTROPHY [None]
  - NAUSEA [None]
  - OESOPHAGEAL STENOSIS [None]
  - OESOPHAGITIS [None]
  - PALPITATIONS [None]
  - RECTAL HAEMORRHAGE [None]
  - SCAR [None]
  - SKIN INFECTION [None]
  - TACHYCARDIA [None]
  - THROAT TIGHTNESS [None]
  - VISUAL ACUITY REDUCED [None]
